FAERS Safety Report 21118786 (Version 1)
Quarter: 2022Q3

REPORT INFORMATION
  Report Type: Spontaneous
  Country: US (occurrence: None)
  Receive Date: 20220721
  Receipt Date: 20220721
  Transmission Date: 20221027
  Serious: No
  Sender: FDA-Public Use
  Company Number: None

PATIENT
  Age: 74 Year
  Sex: Female

DRUGS (14)
  1. PAXLOVID [Suspect]
     Active Substance: NIRMATRELVIR\RITONAVIR
     Indication: COVID-19
     Dosage: OTHER QUANTITY : 3 TABLET(S);?FREQUENCY : TWICE A DAY;?
     Route: 048
  2. PRAMIPEXOLE [Concomitant]
     Active Substance: PRAMIPEXOLE
  3. PROLIA [Concomitant]
     Active Substance: DENOSUMAB
  4. CALCIUM [Concomitant]
     Active Substance: CALCIUM
  5. VITAMIN D [Concomitant]
     Active Substance: VITAMIN D NOS
  6. COLACE [Concomitant]
     Active Substance: DOCUSATE SODIUM
  7. MINERALS\VITAMINS [Concomitant]
     Active Substance: MINERALS\VITAMINS
  8. Glucosamine/Chondroitin [Concomitant]
  9. FISH OIL [Concomitant]
     Active Substance: FISH OIL
  10. VITAMIN B12 [Concomitant]
     Active Substance: CYANOCOBALAMIN
  11. HERBALS\TURMERIC [Concomitant]
     Active Substance: HERBALS\TURMERIC
  12. PROBIOTICS NOS [Concomitant]
     Active Substance: PROBIOTICS NOS
  13. PEPCID [Concomitant]
     Active Substance: FAMOTIDINE
  14. VITAMIN C [Concomitant]
     Active Substance: ASCORBIC ACID

REACTIONS (4)
  - Restless legs syndrome [None]
  - Initial insomnia [None]
  - Restless arm syndrome [None]
  - Sleep disorder [None]

NARRATIVE: CASE EVENT DATE: 20220720
